FAERS Safety Report 4889722-6 (Version None)
Quarter: 2006Q1

REPORT INFORMATION
  Report Type: 
  Country: None (occurrence: None)
  Receive Date: 20060120
  Receipt Date: 20060110
  Transmission Date: 20060701
  Serious: Yes (Life-Threatening)
  Sender: FDA-Public Use
  Company Number: HQWYE305011JAN06

PATIENT
  Sex: 0

DRUGS (3)
  1. TYGACIL [Suspect]
     Indication: KLEBSIELLA INFECTION
     Dosage: INTRAVENOUS
     Route: 042
  2. TYGACIL [Suspect]
     Indication: MULTIPLE-DRUG RESISTANCE
     Dosage: INTRAVENOUS
     Route: 042
  3. WARFARIN SODIUM [Suspect]

REACTIONS (3)
  - ANTICOAGULATION DRUG LEVEL ABOVE THERAPEUTIC [None]
  - RETROPERITONEAL HAEMORRHAGE [None]
  - THROMBOCYTOPENIA [None]
